FAERS Safety Report 25062880 (Version 1)
Quarter: 2025Q1

REPORT INFORMATION
  Report Type: Spontaneous
  Country: US (occurrence: None)
  Receive Date: 20250310
  Receipt Date: 20250310
  Transmission Date: 20250408
  Serious: Yes (Other)
  Sender: FDA-CTU
  Company Number: None

PATIENT
  Age: 55 Year
  Sex: Female
  Weight: 86.4 kg

DRUGS (11)
  1. MOXIFLOXACIN OPHTHALMIC [Suspect]
     Active Substance: MOXIFLOXACIN HYDROCHLORIDE
     Indication: Conjunctivitis
     Dosage: FREQUENCY : 3 TIMES A DAY;?
     Route: 047
     Dates: start: 20250307, end: 20250307
  2. CITALOPRAM [Concomitant]
     Active Substance: CITALOPRAM
  3. BUSPIRONE [Concomitant]
     Active Substance: BUSPIRONE HYDROCHLORIDE
  4. PANTOPRAZOLE [Concomitant]
     Active Substance: PANTOPRAZOLE
  5. TOPIRAMATE [Concomitant]
     Active Substance: TOPIRAMATE
  6. GABAPENTIN [Concomitant]
     Active Substance: GABAPENTIN
  7. MONTELUKAST [Concomitant]
     Active Substance: MONTELUKAST
  8. TRELEGY ELLIPTA [Concomitant]
     Active Substance: FLUTICASONE FUROATE\UMECLIDINIUM BROMIDE\VILANTEROL TRIFENATATE
  9. CENTRUM SILVER FOR HER [Concomitant]
  10. MELATONIN [Concomitant]
     Active Substance: MELATONIN
  11. MAGNESIUM GLYCINATE [Concomitant]
     Active Substance: MAGNESIUM GLYCINATE

REACTIONS (11)
  - Feeling hot [None]
  - Dysgeusia [None]
  - Asthenia [None]
  - Tremor [None]
  - Muscle spasms [None]
  - Hypoaesthesia [None]
  - Chest discomfort [None]
  - Palpitations [None]
  - Pain [None]
  - Hyperhidrosis [None]
  - Monoplegia [None]

NARRATIVE: CASE EVENT DATE: 20250308
